FAERS Safety Report 10713600 (Version 1)
Quarter: 2015Q1

REPORT INFORMATION
  Report Type: Spontaneous
  Country: JP (occurrence: JP)
  Receive Date: 20150115
  Receipt Date: 20150115
  Transmission Date: 20150721
  Serious: Yes (Hospitalization)
  Sender: FDA-Public Use
  Company Number: JP-MERCK-1501JPN004622

PATIENT
  Sex: Female

DRUGS (1)
  1. BONALON [Suspect]
     Active Substance: ALENDRONATE SODIUM
     Indication: PRODUCT USED FOR UNKNOWN INDICATION
     Dosage: 35 MG/WEEK, FOR ABOUT 5 YEARS
     Route: 048

REACTIONS (1)
  - Tracheal stenosis [Unknown]
